FAERS Safety Report 14991920 (Version 3)
Quarter: 2018Q3

REPORT INFORMATION
  Report Type: Spontaneous
  Country: US (occurrence: US)
  Receive Date: 20180608
  Receipt Date: 20180801
  Transmission Date: 20181010
  Serious: No
  Sender: FDA-Public Use
  Company Number: US-ACTELION-A-US2018-173514

PATIENT
  Age: 33 Year
  Sex: Female
  Weight: 65.31 kg

DRUGS (5)
  1. REMODULIN [Concomitant]
     Active Substance: TREPROSTINIL
     Dosage: 108 NG/KG, PER MIN
  2. ADCIRCA [Concomitant]
     Active Substance: TADALAFIL
  3. OPSUMIT [Suspect]
     Active Substance: MACITENTAN
     Indication: PULMONARY ARTERIAL HYPERTENSION
     Dosage: 10 MG, QD
     Route: 048
  4. LETAIRIS [Concomitant]
     Active Substance: AMBRISENTAN
  5. REMODULIN [Concomitant]
     Active Substance: TREPROSTINIL
     Dosage: 128 NG/KG, PER MIN

REACTIONS (3)
  - Diarrhoea [Unknown]
  - Headache [Unknown]
  - Sinus congestion [Unknown]
